FAERS Safety Report 4665953-5 (Version None)
Quarter: 2005Q2

REPORT INFORMATION
  Report Type: 
  Country: None (occurrence: None)
  Receive Date: 20050517
  Receipt Date: 20050222
  Transmission Date: 20051028
  Serious: No
  Sender: FDA-Public Use
  Company Number: S05-USA-00942-01

PATIENT
  Age: 83 Year
  Sex: Female

DRUGS (10)
  1. NAMENDA [Suspect]
     Indication: DEMENTIA
     Dosage: 10 MG BID PO
     Route: 048
     Dates: start: 20041103, end: 20050214
  2. NAMENDA [Suspect]
     Indication: DEMENTIA
     Dosage: 5 MG QD PO
     Route: 048
     Dates: start: 20041013, end: 20041019
  3. NAMENDA [Suspect]
     Indication: DEMENTIA
     Dosage: 5 MG BID PO
     Route: 048
     Dates: start: 20041020, end: 20041026
  4. NAMENDA [Suspect]
     Indication: DEMENTIA
     Dosage: 15 MG QD PO
     Route: 048
     Dates: start: 20041027, end: 20041102
  5. ZYPREXA [Suspect]
     Dates: end: 20050209
  6. KLONOPIN [Concomitant]
  7. PROPRANOLOL [Concomitant]
  8. PLAVIX [Concomitant]
  9. ATROVENT [Concomitant]
  10. MUCOFEN [Concomitant]

REACTIONS (3)
  - AGEUSIA [None]
  - MUSCLE TWITCHING [None]
  - NASOPHARYNGITIS [None]
